APPROVED DRUG PRODUCT: ABIRATERONE ACETATE
Active Ingredient: ABIRATERONE ACETATE
Strength: 250MG
Dosage Form/Route: TABLET;ORAL
Application: A215947 | Product #001 | TE Code: AB
Applicant: NOVUGEN ONCOLOGY SDN BHD
Approved: Jan 5, 2022 | RLD: No | RS: No | Type: RX